FAERS Safety Report 12620998 (Version 1)
Quarter: 2016Q3

REPORT INFORMATION
  Report Type: Report from Study
  Country: BR (occurrence: BR)
  Receive Date: 20160804
  Receipt Date: 20160804
  Transmission Date: 20161109
  Serious: Yes (Death)
  Sender: FDA-Public Use
  Company Number: PHHY2016BR106882

PATIENT
  Sex: Male
  Weight: 45 kg

DRUGS (1)
  1. ONBREZ BREEZHALER [Suspect]
     Active Substance: INDACATEROL
     Indication: DYSPNOEA
     Route: 055

REACTIONS (3)
  - Lung neoplasm malignant [Fatal]
  - Product use issue [Unknown]
  - Drug ineffective [Unknown]
